FAERS Safety Report 25278777 (Version 2)
Quarter: 2025Q2

REPORT INFORMATION
  Report Type: Spontaneous
  Country: ES (occurrence: ES)
  Receive Date: 20250507
  Receipt Date: 20250516
  Transmission Date: 20250716
  Serious: Yes (Disabling)
  Sender: Kenvue
  Company Number: ES-VIR-ES-IQFVIRFV-8804

PATIENT

DRUGS (5)
  1. IBUPROFEN [Suspect]
     Active Substance: IBUPROFEN
     Indication: Pain in extremity
     Dosage: 600 MILLIGRAM, THRICE A DAY (8 HOURS)
     Route: 065
  2. LEVETIRACETAM [Suspect]
     Active Substance: LEVETIRACETAM
     Indication: Migraine
     Dosage: 500 MILLIGRAM, 12 HOURS
     Route: 065
  3. ACETAMINOPHEN [Suspect]
     Active Substance: ACETAMINOPHEN
     Indication: Pain in extremity
     Dosage: 1 GRAM, THRICE A DAY (8 HOURS)
     Route: 065
  4. DULOXETINE [Suspect]
     Active Substance: DULOXETINE
     Indication: Pain in extremity
     Dosage: 60 MILLIGRAM, ONCE A DAY (24 HOURS)
     Route: 065
  5. PREGABALIN [Suspect]
     Active Substance: PREGABALIN
     Indication: Pain in extremity
     Dosage: 150 MILLIGRAM, TWICE A DAY (PREGABALIN 150MG/12H)
     Route: 065

REACTIONS (3)
  - Anxiety [Recovered/Resolved]
  - Depressive symptom [Recovered/Resolved]
  - Drug ineffective [Recovered/Resolved]
